FAERS Safety Report 24588061 (Version 1)
Quarter: 2024Q4

REPORT INFORMATION
  Report Type: Report from Study
  Country: CA (occurrence: CA)
  Receive Date: 20241107
  Receipt Date: 20241107
  Transmission Date: 20250115
  Serious: Yes (Hospitalization, Other)
  Sender: ABBVIE
  Company Number: CA-ABBVIE-5988947

PATIENT
  Age: 71 Year
  Sex: Female

DRUGS (1)
  1. SKYRIZI [Suspect]
     Active Substance: RISANKIZUMAB-RZAA
     Indication: Crohn^s disease
     Dosage: 360 MG/2.4ML
     Route: 058
     Dates: start: 20240718

REACTIONS (6)
  - Post procedural infection [Recovering/Resolving]
  - Purulent discharge [Unknown]
  - Antimicrobial susceptibility test resistant [Unknown]
  - Hypotension [Unknown]
  - Ileostomy closure [Unknown]
  - Pyrexia [Unknown]

NARRATIVE: CASE EVENT DATE: 20240101
